FAERS Safety Report 15476903 (Version 2)
Quarter: 2018Q4

REPORT INFORMATION
  Report Type: Report from Study
  Country: FR (occurrence: FR)
  Receive Date: 20181009
  Receipt Date: 20181015
  Transmission Date: 20190205
  Serious: Yes (Death)
  Sender: FDA-Public Use
  Company Number: FR-AEGERION PHARMACEUTICAL, INC-AEGR003996

PATIENT

DRUGS (1)
  1. METRELEPTIN [Suspect]
     Active Substance: METRELEPTIN
     Indication: PRODUCT USED FOR UNKNOWN INDICATION
     Dosage: 0.13 MG/KG/QD
     Route: 058
     Dates: start: 201011, end: 20180915

REACTIONS (1)
  - Septic shock [Fatal]

NARRATIVE: CASE EVENT DATE: 20180918
